FAERS Safety Report 12777065 (Version 1)
Quarter: 2016Q3

REPORT INFORMATION
  Report Type: Report from Study
  Country: DE (occurrence: DE)
  Receive Date: 20160923
  Receipt Date: 20160923
  Transmission Date: 20161109
  Serious: Yes (Hospitalization)
  Sender: FDA-Public Use
  Company Number: US-ASTRAZENECA-2016SF01128

PATIENT
  Age: 8 Month
  Sex: Female

DRUGS (6)
  1. SYNAGIS [Suspect]
     Active Substance: PALIVIZUMAB
     Indication: ANTIVIRAL PROPHYLAXIS
     Dosage: 62.0MG ONCE/SINGLE ADMINISTRATION
     Route: 030
     Dates: start: 20081118, end: 20081118
  2. SYNAGIS [Suspect]
     Active Substance: PALIVIZUMAB
     Indication: ANTIVIRAL PROPHYLAXIS
     Dosage: 70.0MG ONCE/SINGLE ADMINISTRATION
     Route: 030
     Dates: start: 20081216, end: 20081216
  3. SYNAGIS [Suspect]
     Active Substance: PALIVIZUMAB
     Indication: ANTIVIRAL PROPHYLAXIS
     Dosage: 75.0MG ONCE/SINGLE ADMINISTRATION
     Route: 030
     Dates: start: 20090113, end: 20090113
  4. SYNAGIS [Suspect]
     Active Substance: PALIVIZUMAB
     Indication: ANTIVIRAL PROPHYLAXIS
     Dosage: 54.0MG ONCE/SINGLE ADMINISTRATION
     Route: 030
     Dates: start: 20081021, end: 20081021
  5. SYNAGIS [Suspect]
     Active Substance: PALIVIZUMAB
     Indication: ANTIVIRAL PROPHYLAXIS
     Dosage: 78.0MG ONCE/SINGLE ADMINISTRATION
     Route: 030
     Dates: start: 20090218, end: 20090218
  6. SYNAGIS [Suspect]
     Active Substance: PALIVIZUMAB
     Indication: ANTIVIRAL PROPHYLAXIS
     Dosage: 84.0MG ONCE/SINGLE ADMINISTRATION
     Route: 030
     Dates: start: 20090319, end: 20090319

REACTIONS (2)
  - Nosocomial infection [Unknown]
  - Bronchitis [Unknown]

NARRATIVE: CASE EVENT DATE: 200902
